FAERS Safety Report 5917319-5 (Version None)
Quarter: 2008Q4

REPORT INFORMATION
  Report Type: 
  Country: None (occurrence: None)
  Receive Date: 20081014
  Receipt Date: 20081007
  Transmission Date: 20090506
  Serious: Yes (Death)
  Sender: FDA-Public Use
  Company Number: US-ELI_LILLY_AND_COMPANY-US200810001920

PATIENT
  Sex: Male
  Weight: 100.68 kg

DRUGS (8)
  1. SOMATROPIN [Suspect]
     Indication: GROWTH HORMONE DEFICIENCY
     Dosage: 0.5 MG, DAILY (1/D)
     Route: 058
     Dates: start: 20030409
  2. SYNTHROID [Concomitant]
     Indication: HYPOPITUITARISM
     Route: 048
     Dates: start: 19730101
  3. HYDROCORTISONE [Concomitant]
     Route: 048
     Dates: start: 19990101
  4. HYZAAR [Concomitant]
     Indication: HYPERTENSION
     Dosage: 50 MG, 2/D
     Route: 048
     Dates: start: 19960101
  5. FOSAMAX [Concomitant]
  6. ATENOLOL [Concomitant]
     Indication: HYPERTENSION
     Dosage: 50 MG, DAILY (1/D)
     Route: 048
  7. CALCIUM [Concomitant]
     Dosage: 1000 MG, DAILY (1/D)
     Route: 048
  8. NEXIUM [Concomitant]
     Indication: ULCER
     Route: 048
     Dates: start: 20060201

REACTIONS (1)
  - MYOCARDIAL INFARCTION [None]
